FAERS Safety Report 9516498 (Version 1)
Quarter: 2013Q1

REPORT INFORMATION
  Report Type: Spontaneous
  Country: US (occurrence: None)
  Receive Date: 20130305
  Receipt Date: 20130305
  Transmission Date: 20140127
  Serious: Yes (Other)
  Sender: FDA-Public Use
  Company Number: 163-21880-12080605

PATIENT
  Age: 82 Year
  Sex: Female

DRUGS (4)
  1. REVLIMID (LENALIDOMIDE) (CAPSULES) [Suspect]
     Indication: PLASMA CELL MYELOMA
     Dosage: 25 MG, 21 IN 21 D, PO
     Route: 048
     Dates: start: 20120605
  2. ZOLOFT (SERTRALINE HYDROCHLORIDE) [Concomitant]
  3. PERCOCET (OXYOCET) [Concomitant]
  4. PROTONIX (UNKNOWN) [Concomitant]

REACTIONS (2)
  - Nausea [None]
  - Vomiting [None]
